FAERS Safety Report 6213146-2 (Version None)
Quarter: 2009Q2

REPORT INFORMATION
  Report Type: 
  Country: None (occurrence: None)
  Receive Date: 20090601
  Receipt Date: 20090601
  Transmission Date: 20091009
  Serious: Yes (Hospitalization)
  Sender: FDA-Public Use
  Company Number: None

PATIENT
  Age: 62 Year
  Sex: Male
  Weight: 90 kg

DRUGS (1)
  1. METHADONE HCL [Suspect]
     Dates: start: 19990830, end: 20090529

REACTIONS (3)
  - AGITATION [None]
  - INCORRECT DOSE ADMINISTERED [None]
  - SEDATION [None]
